FAERS Safety Report 5482156-5 (Version None)
Quarter: 2007Q4

REPORT INFORMATION
  Report Type: 
  Country: None (occurrence: None)
  Receive Date: 20071005
  Receipt Date: 20070926
  Transmission Date: 20080405
  Serious: Yes (Hospitalization, Disabling, Other)
  Sender: FDA-Public Use
  Company Number: PHBS2006GB11287

PATIENT
  Age: 84 Year
  Sex: Male

DRUGS (13)
  1. COMTESS (ENTACAPONE) UNKNOWN [Suspect]
     Indication: PARKINSON'S DISEASE
     Dosage: 200 MG, QD, ORAL; 200 MG, BID, ORAL; 200 MG, TID, ORAL
     Route: 048
     Dates: start: 20060719, end: 20060719
  2. COMTESS (ENTACAPONE) UNKNOWN [Suspect]
     Indication: PARKINSON'S DISEASE
     Dosage: 200 MG, QD, ORAL; 200 MG, BID, ORAL; 200 MG, TID, ORAL
     Route: 048
     Dates: start: 20060720, end: 20060720
  3. COMTESS (ENTACAPONE) UNKNOWN [Suspect]
     Indication: PARKINSON'S DISEASE
     Dosage: 200 MG, QD, ORAL; 200 MG, BID, ORAL; 200 MG, TID, ORAL
     Route: 048
     Dates: start: 20060718
  4. WARFARIN SODIUM [Suspect]
  5. MADOPAR (BENSERAZIDE HYDROCHLORIDE, LEVODOPA) [Concomitant]
  6. QUININE SULFATE [Concomitant]
  7. RAMIPRIL [Concomitant]
  8. FELODIPINE [Concomitant]
  9. AMIODARONE HCL [Concomitant]
  10. FUROSEMIDE [Concomitant]
  11. TADALAFIL (TADALAFIL) [Concomitant]
  12. DIGOXIN [Concomitant]
  13. ALSASOLYN MR [Concomitant]

REACTIONS (4)
  - CONTUSION [None]
  - DRUG INTERACTION [None]
  - INTERNATIONAL NORMALISED RATIO INCREASED [None]
  - RECTAL HAEMORRHAGE [None]
